FAERS Safety Report 18959115 (Version 1)
Quarter: 2021Q1

REPORT INFORMATION
  Report Type: Spontaneous
  Country: AT (occurrence: AT)
  Receive Date: 20210302
  Receipt Date: 20210302
  Transmission Date: 20210420
  Serious: Yes (Death)
  Sender: FDA-Public Use
  Company Number: AT-JNJFOC-20210239055

PATIENT
  Age: 80 Year
  Sex: Male

DRUGS (11)
  1. ERLEADA [Suspect]
     Active Substance: APALUTAMIDE
     Indication: PRODUCT USED FOR UNKNOWN INDICATION
     Dosage: 4 ? 0 ? 0
     Route: 048
     Dates: start: 20201111, end: 20201117
  2. THROMBO ASS [Concomitant]
     Active Substance: ASPIRIN
     Dosage: 0?1?0?0
  3. DIABETEX [Concomitant]
     Dosage: 0?0?1?0
  4. FIRMAGON [Concomitant]
     Active Substance: DEGARELIX ACETATE
  5. MOLAXOLE [Concomitant]
     Active Substance: POLYETHYLENE GLYCOL 3350\POTASSIUM CHLORIDE\SODIUM BICARBONATE\SODIUM CHLORIDE
     Dosage: 1?0?1?0
  6. DOMINAL (PROTHIPENDYL HYDROCHLORIDE) [Concomitant]
     Active Substance: PROTHIPENDYL HYDROCHLORIDE
     Dosage: 0?0?1/2
  7. VITAMINS WITH MINERALS [Concomitant]
     Active Substance: MINERALS\VITAMINS
     Dosage: 1X TGL.
  8. RAMIPRIL HCT [Concomitant]
     Active Substance: HYDROCHLOROTHIAZIDE\RAMIPRIL
     Dosage: 1?0?0?0, RAMIPRIL?HCT SANDOZ 2.5 MG/12.5 MG
  9. METOHEXAL [Concomitant]
     Active Substance: METOPROLOL
     Dosage: 0?0?1?0
  10. ATORVASTATIN TEVA [Concomitant]
     Active Substance: ATORVASTATIN
     Dosage: 0?0?1/2?0
  11. EUTHYROX [Concomitant]
     Active Substance: LEVOTHYROXINE SODIUM
     Dosage: 1?0?0?0? MO?FR

REACTIONS (1)
  - SJS-TEN overlap [Fatal]

NARRATIVE: CASE EVENT DATE: 20201114
